FAERS Safety Report 14700166 (Version 2)
Quarter: 2018Q2

REPORT INFORMATION
  Report Type: Spontaneous
  Country: GR (occurrence: GR)
  Receive Date: 20180330
  Receipt Date: 20180413
  Transmission Date: 20180711
  Serious: Yes (Hospitalization, Other)
  Sender: FDA-Public Use
  Company Number: GR-009507513-1803GRC009044

PATIENT
  Age: 62 Year
  Sex: Male
  Weight: 100 kg

DRUGS (4)
  1. ESMERON [Suspect]
     Active Substance: ROCURONIUM BROMIDE
     Dosage: UNK
  2. BRIDION [Suspect]
     Active Substance: SUGAMMADEX
     Dosage: 1000 MG
  3. ESMERON [Suspect]
     Active Substance: ROCURONIUM BROMIDE
     Indication: HYPOTONIA
     Dosage: UNK
  4. BRIDION [Suspect]
     Active Substance: SUGAMMADEX
     Indication: NEUROMUSCULAR BLOCKADE REVERSAL
     Dosage: 5 ML (500 MG)

REACTIONS (6)
  - Neuromuscular block prolonged [Recovered/Resolved]
  - Fear [Recovering/Resolving]
  - Acidosis [Recovering/Resolving]
  - Hypothermia [Recovering/Resolving]
  - Incorrect dose administered [Unknown]
  - Drug administration error [Unknown]
